FAERS Safety Report 5847075-0 (Version None)
Quarter: 2008Q3

REPORT INFORMATION
  Report Type: 
  Country: None (occurrence: None)
  Receive Date: 20080815
  Receipt Date: 20080805
  Transmission Date: 20090109
  Serious: Yes (Other)
  Sender: FDA-Public Use
  Company Number: US-PFIZER INC-2008066462

PATIENT
  Sex: Female
  Weight: 61.2 kg

DRUGS (9)
  1. CHANTIX [Suspect]
     Indication: SMOKING CESSATION THERAPY
  2. LAMICTAL [Concomitant]
  3. SERTRALINE [Concomitant]
  4. MIRTAZAPINE [Concomitant]
  5. ROZEREM [Concomitant]
  6. LORAZEPAM [Concomitant]
  7. LOVASTATIN [Concomitant]
  8. FOSAMAX [Concomitant]
  9. DONNATAL [Concomitant]

REACTIONS (2)
  - MEDICATION ERROR [None]
  - URINARY TRACT INFECTION [None]
